FAERS Safety Report 25120019 (Version 1)
Quarter: 2025Q1

REPORT INFORMATION
  Report Type: Report from Study
  Country: CA (occurrence: CA)
  Receive Date: 20250325
  Receipt Date: 20250325
  Transmission Date: 20250408
  Serious: Yes (Other)
  Sender: ABBVIE
  Company Number: CA-ABBVIE-6192042

PATIENT
  Age: 49 Year
  Sex: Female

DRUGS (1)
  1. BOTOX [Suspect]
     Active Substance: ONABOTULINUMTOXINA
     Indication: Migraine
     Route: 065
     Dates: start: 20250319, end: 20250319

REACTIONS (5)
  - Loss of consciousness [Unknown]
  - Presyncope [Unknown]
  - Vomiting [Unknown]
  - Pulse absent [Unknown]
  - Hypotension [Unknown]

NARRATIVE: CASE EVENT DATE: 20250319
